FAERS Safety Report 24383289 (Version 2)
Quarter: 2024Q4

REPORT INFORMATION
  Report Type: Spontaneous
  Country: US (occurrence: US)
  Receive Date: 20241001
  Receipt Date: 20241119
  Transmission Date: 20250115
  Serious: No
  Sender: CATALYST PHARMA
  Company Number: US-CATALYST PHARMACEUTICALS-US-CATA-24-00751

PATIENT
  Sex: Male
  Weight: 56.689 kg

DRUGS (2)
  1. AGAMREE [Suspect]
     Active Substance: VAMOROLONE
     Indication: Duchenne muscular dystrophy
     Dosage: 7.5 ML DAILY
     Route: 048
     Dates: start: 20240530, end: 2024
  2. VITAMINS [Concomitant]
     Active Substance: VITAMINS
     Indication: Product used for unknown indication
     Dosage: ONCE A DAY
     Route: 065

REACTIONS (2)
  - Weight increased [Unknown]
  - Behaviour disorder [Unknown]

NARRATIVE: CASE EVENT DATE: 20240101
